FAERS Safety Report 19446244 (Version 1)
Quarter: 2021Q2

REPORT INFORMATION
  Report Type: Spontaneous
  Country: SE (occurrence: SE)
  Receive Date: 20210622
  Receipt Date: 20210622
  Transmission Date: 20210717
  Serious: Yes (Other)
  Sender: FDA-Public Use
  Company Number: SE-ORION CORPORATION ORION PHARMA-TREX2021-0033

PATIENT
  Sex: Male

DRUGS (1)
  1. METHOTREXATE (TRADE NAME UNKNOWN) [Suspect]
     Active Substance: METHOTREXATE
     Indication: RHEUMATIC DISORDER
     Route: 048

REACTIONS (5)
  - Cardiac amyloidosis [Unknown]
  - Fatigue [Unknown]
  - Muscle atrophy [Unknown]
  - Cardiac failure [Unknown]
  - Dizziness [Unknown]
